FAERS Safety Report 8533138-8 (Version None)
Quarter: 2012Q3

REPORT INFORMATION
  Report Type: 
  Country: None (occurrence: None)
  Receive Date: 20120724
  Receipt Date: 20120719
  Transmission Date: 20120928
  Serious: Yes (Other)
  Sender: FDA-Public Use
  Company Number: BR-BAYER-2012-073528

PATIENT
  Sex: Female

DRUGS (9)
  1. FLUOXETINE HCL [Concomitant]
     Indication: DEPRESSION
     Dosage: 20 MG, BID
     Route: 048
  2. REGULAR INSULIN [Concomitant]
     Indication: DIABETES MELLITUS
     Dosage: UNK
     Route: 058
     Dates: start: 20040101
  3. BETAJECT COMFORT [Suspect]
     Indication: DEVICE THERAPY
     Dosage: UNK
  4. PAMELOR [Concomitant]
     Indication: DEPRESSION
     Dosage: 50 MG, BID
     Route: 048
  5. BETASERON [Suspect]
     Indication: RELAPSING-REMITTING MULTIPLE SCLEROSIS
     Dosage: 1 ML, QOD
     Route: 058
     Dates: start: 20000101
  6. NPH INSULIN [Concomitant]
     Indication: DIABETES MELLITUS
     Dosage: UNK
     Route: 058
     Dates: start: 20040101
  7. CARBAMAZEPINE [Concomitant]
     Indication: PAIN
     Dosage: 400 MG, UNK
     Route: 048
  8. AMPLICTIL [Concomitant]
     Indication: PAIN
     Dosage: 10 GTT, UNK
     Route: 048
  9. AMLODIPINE [Concomitant]
     Indication: HYPERTENSION
     Dosage: 5 MG, QID
     Route: 048
     Dates: start: 20100101

REACTIONS (1)
  - SKIN NECROSIS [None]
